FAERS Safety Report 17102559 (Version 4)
Quarter: 2020Q1

REPORT INFORMATION
  Report Type: Report from Study
  Country: None (occurrence: US)
  Receive Date: 20191202
  Receipt Date: 20200304
  Transmission Date: 20200409
  Serious: Yes (Other)
  Sender: FDA-Public Use
  Company Number: US-ABBVIE-19K-163-2980783-00

PATIENT
  Sex: Female
  Weight: 45.4 kg

DRUGS (7)
  1. LEVOTHYROXINE. [Concomitant]
     Active Substance: LEVOTHYROXINE
     Indication: THYROID DISORDER
  2. TAGAMET [Concomitant]
     Active Substance: CIMETIDINE
     Indication: INTRA-ABDOMINAL HAEMORRHAGE
  3. LEVOTHYROXINE. [Concomitant]
     Active Substance: LEVOTHYROXINE
     Indication: DEPRESSION
  4. TAGAMET [Concomitant]
     Active Substance: CIMETIDINE
     Indication: ABDOMINAL PAIN
  5. HUMIRA [Suspect]
     Active Substance: ADALIMUMAB
     Indication: CROHN^S DISEASE
     Dosage: LOADING DOSE
     Route: 058
     Dates: start: 2019, end: 2019
  6. FLUOXETINE [Concomitant]
     Active Substance: FLUOXETINE HYDROCHLORIDE
     Indication: DEPRESSION
  7. HUMIRA [Suspect]
     Active Substance: ADALIMUMAB
     Route: 058

REACTIONS (19)
  - Feeling abnormal [Unknown]
  - Blood electrolytes abnormal [Unknown]
  - Gastric ulcer [Unknown]
  - Flatulence [Unknown]
  - Injection site pain [Recovering/Resolving]
  - Sinusitis [Recovering/Resolving]
  - Muscle spasms [Unknown]
  - Dizziness [Unknown]
  - Heart rate increased [Unknown]
  - Post procedural haemorrhage [Recovering/Resolving]
  - Decreased appetite [Unknown]
  - Skin cancer [Unknown]
  - Fear [Unknown]
  - Malaise [Unknown]
  - Food intolerance [Unknown]
  - Therapeutic product effect decreased [Recovering/Resolving]
  - Gastrointestinal motility disorder [Not Recovered/Not Resolved]
  - Dehydration [Recovering/Resolving]
  - Blood pressure increased [Unknown]

NARRATIVE: CASE EVENT DATE: 2018
